FAERS Safety Report 9675300 (Version 1)
Quarter: 2013Q4

REPORT INFORMATION
  Report Type: Spontaneous
  Country: US (occurrence: US)
  Receive Date: 20131107
  Receipt Date: 20131107
  Transmission Date: 20140711
  Serious: No
  Sender: FDA-Public Use
  Company Number: US-PFIZER INC-2013316238

PATIENT
  Sex: Female

DRUGS (1)
  1. XELJANZ [Suspect]
     Dosage: UNK

REACTIONS (4)
  - Weight increased [Unknown]
  - Oedema [Unknown]
  - Brain natriuretic peptide increased [Unknown]
  - Coronary artery disease [Unknown]
